FAERS Safety Report 25651623 (Version 1)
Quarter: 2025Q3

REPORT INFORMATION
  Report Type: Spontaneous
  Country: GB (occurrence: GB)
  Receive Date: 20250806
  Receipt Date: 20250806
  Transmission Date: 20251021
  Serious: Yes (Hospitalization, Other)
  Sender: SLATE RUN
  Company Number: GB-SLATERUN-2025SRLIT00117

PATIENT
  Age: 5 Decade
  Sex: Female

DRUGS (4)
  1. LEUCOVORIN CALCIUM [Suspect]
     Active Substance: LEUCOVORIN CALCIUM
     Indication: Colon cancer stage IV
     Route: 065
  2. FLUOROURACIL [Suspect]
     Active Substance: FLUOROURACIL
     Indication: Colon cancer stage IV
     Route: 065
  3. OXALIPLATIN [Suspect]
     Active Substance: OXALIPLATIN
     Indication: Colon cancer stage IV
     Route: 065
  4. BEVACIZUMAB [Concomitant]
     Active Substance: BEVACIZUMAB
     Route: 065

REACTIONS (1)
  - Liver injury [Recovering/Resolving]
